FAERS Safety Report 6675600-9 (Version None)
Quarter: 2010Q2

REPORT INFORMATION
  Report Type: 
  Country: None (occurrence: None)
  Receive Date: 20100409
  Receipt Date: 20100406
  Transmission Date: 20101027
  Serious: Yes (Other)
  Sender: FDA-Public Use
  Company Number: PHHY2010US18217

PATIENT
  Sex: Female

DRUGS (33)
  1. RECLAST [Suspect]
     Dosage: UNK
     Route: 042
     Dates: start: 20100113
  2. WARFARIN SODIUM [Concomitant]
     Indication: ATRIAL FIBRILLATION
     Dosage: 2.5 MG TAB/DAY
     Route: 048
     Dates: start: 20100111, end: 20100123
  3. WARFARIN SODIUM [Concomitant]
     Dosage: 5 MG M-W-F
     Dates: start: 20100323
  4. WARFARIN SODIUM [Concomitant]
     Dosage: 2.5 MG ALL OTHER DAYS
     Dates: start: 20100323
  5. ENALAPRIL MALEATE [Concomitant]
     Indication: ESSENTIAL HYPERTENSION
     Dosage: 5 MG, BID
     Route: 048
     Dates: start: 20090121
  6. LANOXIN [Concomitant]
     Indication: ATRIAL FIBRILLATION
     Dosage: 0.125 MG, QOD
     Route: 048
     Dates: start: 20090121
  7. LANOXIN [Concomitant]
     Dosage: 2 TABS QOD (EVERY OTHER DAY)
     Route: 048
     Dates: start: 20090121
  8. VISION TABS [Concomitant]
     Dosage: 1 TAB BID (TWO TIMES PER DAY)
     Route: 048
     Dates: start: 20090121
  9. SEROQUEL [Concomitant]
     Indication: PSYCHOTIC DISORDER
     Dosage: 50 MG TAB 1/2 TAB=25 MG QD (EVERY DAY)
     Route: 048
     Dates: start: 20090130
  10. SEROQUEL [Concomitant]
     Dosage: 50 MG TAB, 1 TAB HS (HOUR OF SLEEP)
     Route: 048
     Dates: start: 20090130
  11. SEROQUEL [Concomitant]
     Dosage: 25 MG TAB, 1/2 TAB=12.5 MG QD (EVERY DAY)
     Route: 048
     Dates: start: 20090206
  12. OXYBUTYNIN CHLORIDE [Concomitant]
     Dosage: 5 MG TAB, 1 TAB BID (TWO TIMES PER DAY)
     Route: 048
     Dates: start: 20100125
  13. FUROSEMIDE [Concomitant]
     Dosage: 20 MG TAB, 1 TAB QD (EVERY DAY)
     Route: 048
     Dates: start: 20090929
  14. APAP TAB [Concomitant]
     Indication: PAIN
     Dosage: 1 TAB TID (THREE TIMES PER DAY)
     Route: 048
     Dates: start: 20090910
  15. APAP TAB [Concomitant]
     Dosage: 325MG TAB, 2 TABS=650 MG PRN  (AS NEEDED) MAY TAKE EVERY 4 HOURS PRN
     Route: 048
     Dates: start: 20090121
  16. DOCUSATE SODIUM [Concomitant]
     Dosage: 1 CAP QD (EVERY DAY)
     Route: 048
     Dates: start: 20100112
  17. CALCIUM CARBONATE W/VITAMIN D NOS [Concomitant]
     Dosage: 600 MG-200 U TAB, 1 TAB BID (TWO TIMES PER DAY)
     Route: 048
     Dates: start: 20100111
  18. EXELON [Concomitant]
     Dosage: 9.5 MG/24H FILM, 1 PATCH HS (HOUR OF SLEEP)
     Route: 062
     Dates: start: 20091109
  19. FENTANYL-100 [Concomitant]
     Dosage: 25 MCG/HR FILM, 1 PATCH Q72H (EVERY 72 HOURS)
     Route: 062
     Dates: start: 20100110
  20. NAMENDA [Concomitant]
     Dosage: 5 MG TAB, 1 TAB BID (TWO TIMES PER DAY)
     Route: 048
     Dates: start: 20100224, end: 20100302
  21. NAMENDA [Concomitant]
     Dosage: 10 MG TAB, 1 TAB QD (EVERY DAY)
     Route: 048
     Dates: start: 20100303, end: 20100309
  22. NAMENDA [Concomitant]
     Dosage: 5 MG TAB, 1 TAB QD (EVERY DAY)
     Route: 048
     Dates: start: 20100303, end: 20100309
  23. NAMENDA [Concomitant]
     Dosage: 10 MG TAB, 1 TAB BID (TWO TIMES PER DAY)
     Route: 048
     Dates: start: 20100310
  24. SENNA [Concomitant]
     Indication: CONSTIPATION
     Dosage: 1 TAB PRN/BID (2X/DAY AS NEEDED)
     Route: 048
     Dates: start: 20090121
  25. DULCOLAX [Concomitant]
     Indication: CONSTIPATION
     Dosage: 10 MG SUPP, 1 SUPP PRN (AS NEEDED), MAY TAKE DAILY PRN. MAY REPEAT X 1 IF NEEDED
     Route: 048
     Dates: start: 20090121
  26. MILK OF MAGNESIA TAB [Concomitant]
     Indication: CONSTIPATION
     Dosage: 30 ML PRN/QD (EVERY DAY AS NEEDED)
     Route: 048
     Dates: start: 20090121
  27. MYLANTA                                 /USA/ [Concomitant]
     Dosage: 15 ML PRN/TID (3X/DAY AS NEEDED)
     Route: 048
     Dates: start: 20090122
  28. CHLORASEPTIC [Concomitant]
     Dosage: 6 MG LOZ, 1 LOZ PRN (AS NEEDED), MAY TAKE Q 2 HOURS PRN
     Route: 048
     Dates: start: 20090420
  29. ROBITUSSIN DM                           /USA/ [Concomitant]
     Dosage: 2 TSP PRN (AS NEEDED), MAY TAKE Q 4 HOURS PRN
     Route: 048
     Dates: start: 20090827
  30. TRAMADOL HYDROCHLORIDE [Concomitant]
     Dosage: 50 MG TAB, 1 TAB PRN (AS NEEDED), MAY TAKE Q 4 HOURS PRN
     Route: 048
     Dates: start: 20090622
  31. ACETAMINOPHEN AND HYDROCODONE BITARTRATE [Concomitant]
     Dosage: 500 MG - 5 MG, 1 TAB PRN (AS NEEDED), MAY TAKE Q 6 HOURS PRN
     Route: 048
     Dates: start: 20100110
  32. ACETAMINOPHEN AND HYDROCODONE BITARTRATE [Concomitant]
     Dosage: 500 MG - 5 MG, 2 TABS PRN (AS NEEDED), MAY TAKE Q 6 HOURS PRN
     Route: 048
     Dates: start: 20100110
  33. DSST [Concomitant]
     Dosage: 1/1 BID
     Dates: start: 20100310

REACTIONS (2)
  - FALL [None]
  - LOSS OF CONSCIOUSNESS [None]
